FAERS Safety Report 25647860 (Version 4)
Quarter: 2025Q4

REPORT INFORMATION
  Report Type: Spontaneous
  Country: US (occurrence: US)
  Receive Date: 20250806
  Receipt Date: 20251006
  Transmission Date: 20260117
  Serious: Yes (Other)
  Sender: RADIUS PHARM
  Company Number: US-RADIUS HEALTH INC.-US-RADIUS-25051772

PATIENT
  Sex: Female

DRUGS (6)
  1. TYMLOS [Suspect]
     Active Substance: ABALOPARATIDE
     Indication: Senile osteoporosis
     Dosage: 80 MICROGRAM, QD
     Route: 058
     Dates: start: 20240227
  2. TYMLOS [Suspect]
     Active Substance: ABALOPARATIDE
     Dosage: UNK
     Route: 065
     Dates: start: 202508
  3. TYMLOS [Suspect]
     Active Substance: ABALOPARATIDE
     Dosage: UNK
     Route: 058
  4. PEGINTRON [Concomitant]
     Active Substance: PEGINTERFERON ALFA-2B
     Indication: Product used for unknown indication
  5. RIBAVIRIN [Concomitant]
     Active Substance: RIBAVIRIN
     Indication: Product used for unknown indication
  6. VICTRELIS [Concomitant]
     Active Substance: BOCEPREVIR
     Indication: Product used for unknown indication

REACTIONS (21)
  - Compression fracture [Unknown]
  - Pelvic fracture [Unknown]
  - Spinal fracture [Unknown]
  - Fracture [Unknown]
  - Feeling drunk [Unknown]
  - Brain fog [Unknown]
  - Head injury [Not Recovered/Not Resolved]
  - Nervous system disorder [Unknown]
  - Concussion [Not Recovered/Not Resolved]
  - Road traffic accident [Unknown]
  - Confusional state [Unknown]
  - Skin disorder [Unknown]
  - Blood disorder [Unknown]
  - Blood blister [Not Recovered/Not Resolved]
  - Dizziness [Not Recovered/Not Resolved]
  - Nausea [Unknown]
  - Malaise [Unknown]
  - Headache [Unknown]
  - Contusion [Not Recovered/Not Resolved]
  - Product label issue [Unknown]
  - Product dose omission issue [Unknown]

NARRATIVE: CASE EVENT DATE: 20250101
